FAERS Safety Report 18737273 (Version 2)
Quarter: 2021Q1

REPORT INFORMATION
  Report Type: Report from Study
  Country: JP (occurrence: JP)
  Receive Date: 20210113
  Receipt Date: 20210324
  Transmission Date: 20210419
  Serious: Yes (Hospitalization)
  Sender: FDA-Public Use
  Company Number: JP-EMD SERONO-9203672

PATIENT
  Age: 83 Year
  Sex: Male

DRUGS (3)
  1. BAVENCIO [Suspect]
     Active Substance: AVELUMAB
     Route: 041
     Dates: start: 202012
  2. BAVENCIO [Suspect]
     Active Substance: AVELUMAB
     Indication: RENAL CELL CARCINOMA
     Route: 041
  3. INLYTA [Suspect]
     Active Substance: AXITINIB
     Indication: RENAL CELL CARCINOMA

REACTIONS (7)
  - Pneumonia aspiration [Unknown]
  - Proctitis [Unknown]
  - Hepatic function abnormal [Unknown]
  - Stomatitis [Unknown]
  - Hypothyroidism [Unknown]
  - Infusion related reaction [Recovered/Resolved]
  - Hepatic enzyme increased [Unknown]

NARRATIVE: CASE EVENT DATE: 202012
